FAERS Safety Report 6232657-7 (Version None)
Quarter: 2009Q2

REPORT INFORMATION
  Report Type: 
  Country: None (occurrence: None)
  Receive Date: 20090617
  Receipt Date: 20090605
  Transmission Date: 20091009
  Serious: Yes (Death, Other)
  Sender: FDA-Public Use
  Company Number: US-PFIZER INC-2004032207

PATIENT
  Sex: Male

DRUGS (14)
  1. NEURONTIN [Suspect]
     Indication: RESTLESS LEGS SYNDROME
     Route: 048
     Dates: start: 19991222, end: 20020320
  2. NEURONTIN [Suspect]
     Indication: BACK PAIN
  3. NEURONTIN [Suspect]
     Indication: INSOMNIA
  4. NEURONTIN [Suspect]
     Indication: NEUROPATHY PERIPHERAL
  5. VICODIN [Concomitant]
     Dosage: THREE
     Route: 048
     Dates: start: 19950101
  6. CARDURA [Concomitant]
     Route: 048
     Dates: start: 19970301
  7. CELEBREX [Concomitant]
     Route: 048
     Dates: start: 20010720
  8. KLONOPIN [Concomitant]
     Route: 048
     Dates: start: 20011207
  9. REMERON [Concomitant]
     Route: 048
     Dates: start: 20010717
  10. VOLTAREN [Concomitant]
     Route: 048
  11. KEFLEX [Concomitant]
     Route: 065
  12. BETA-LACTAM ANTIBACTERIALS, PENICILLINS [Concomitant]
     Route: 065
  13. TYLENOL W/ CODEINE NO. 3 [Concomitant]
     Route: 065
  14. ULTRAM [Concomitant]
     Route: 065

REACTIONS (5)
  - COMPLETED SUICIDE [None]
  - DRUG INEFFECTIVE FOR UNAPPROVED INDICATION [None]
  - INJURY [None]
  - SELF INJURIOUS BEHAVIOUR [None]
  - SOMNOLENCE [None]
